FAERS Safety Report 4379806-3 (Version None)
Quarter: 2004Q2

REPORT INFORMATION
  Report Type: 
  Country: None (occurrence: None)
  Receive Date: 20040614
  Receipt Date: 20040607
  Transmission Date: 20050107
  Serious: No
  Sender: FDA-Public Use
  Company Number: 2004UW11828

PATIENT
  Age: 42 Year
  Sex: Female

DRUGS (3)
  1. DIPRIVAN [Suspect]
     Indication: SEDATION
  2. HUMULIN R [Concomitant]
  3. LEVOTHYROXINE SODIUM [Concomitant]

REACTIONS (2)
  - BLOOD PRESSURE SYSTOLIC INCREASED [None]
  - OXYGEN SATURATION DECREASED [None]
